FAERS Safety Report 7352421-5 (Version None)
Quarter: 2011Q1

REPORT INFORMATION
  Report Type: 
  Country: None (occurrence: None)
  Receive Date: 20110315
  Receipt Date: 20100908
  Transmission Date: 20110831
  Serious: Yes (Hospitalization, Other)
  Sender: FDA-Public Use
  Company Number: US-BAYER-201013533NA

PATIENT
  Sex: Female
  Weight: 65.909 kg

DRUGS (8)
  1. OCELLA [Suspect]
     Indication: PRODUCT USED FOR UNKNOWN INDICATION
     Route: 048
     Dates: start: 20060701, end: 20090801
  2. YAZ [Suspect]
     Indication: PRODUCT USED FOR UNKNOWN INDICATION
     Route: 048
     Dates: start: 20060701, end: 20090801
  3. NAPROXEN [Concomitant]
     Dates: start: 20020101
  4. YASMIN [Suspect]
     Indication: PRODUCT USED FOR UNKNOWN INDICATION
     Route: 048
     Dates: start: 20060701, end: 20090801
  5. ALBUTEROL [Concomitant]
     Dates: start: 19990101, end: 20010101
  6. DARVOCET [Concomitant]
     Indication: PAIN
     Route: 048
  7. LOESTRIN 1.5/30 [Concomitant]
     Dates: start: 20090901
  8. IBUPROFEN [Concomitant]
     Dates: start: 20020101

REACTIONS (9)
  - WEIGHT INCREASED [None]
  - PROCEDURAL PAIN [None]
  - GALLBLADDER DISORDER [None]
  - DIARRHOEA [None]
  - PROCEDURAL NAUSEA [None]
  - CHEST PAIN [None]
  - BILIARY COLIC [None]
  - CHOLECYSTITIS CHRONIC [None]
  - POST PROCEDURAL DISCOMFORT [None]
